FAERS Safety Report 4925099-5 (Version None)
Quarter: 2006Q1

REPORT INFORMATION
  Report Type: 
  Country: None (occurrence: None)
  Receive Date: 20060228
  Receipt Date: 20051208
  Transmission Date: 20060701
  Serious: No
  Sender: FDA-Public Use
  Company Number: US-GLAXOSMITHKLINE-A0585134A

PATIENT
  Sex: Male

DRUGS (5)
  1. EPZICOM [Suspect]
     Indication: HIV INFECTION
     Dosage: 1TAB PER DAY
     Route: 048
  2. REYATAZ [Concomitant]
  3. KALETRA [Concomitant]
  4. DIDANOSINE [Concomitant]
  5. CEFUROXIM [Concomitant]
     Route: 065

REACTIONS (4)
  - FATIGUE [None]
  - HYPERSENSITIVITY [None]
  - PAIN [None]
  - RASH [None]
